FAERS Safety Report 8052072-3 (Version None)
Quarter: 2012Q1

REPORT INFORMATION
  Report Type: 
  Country: None (occurrence: None)
  Receive Date: 20120118
  Receipt Date: 20120113
  Transmission Date: 20120608
  Serious: Yes (Death)
  Sender: FDA-Public Use
  Company Number: KR-GENZYME-MOZO-1000580

PATIENT
  Sex: Female
  Weight: 22.2 kg

DRUGS (9)
  1. NEUPOGEN [Concomitant]
     Indication: HAEMATOPOIETIC STEM CELL MOBILISATION
     Dosage: 300 MCG, UNK
     Route: 058
     Dates: start: 20101021, end: 20101026
  2. AMBROXOL [Concomitant]
     Indication: PRODUCT USED FOR UNKNOWN INDICATION
  3. MOZOBIL [Suspect]
     Indication: HAEMATOPOIETIC STEM CELL MOBILISATION
     Dosage: 6.5 MG, QD
     Route: 058
     Dates: start: 20101024, end: 20101025
  4. CEFDITOREN [Concomitant]
     Indication: PRODUCT USED FOR UNKNOWN INDICATION
  5. FENOTEROL [Concomitant]
     Indication: PRODUCT USED FOR UNKNOWN INDICATION
  6. MOZOBIL [Suspect]
     Indication: MEDULLOBLASTOMA
  7. SULFAMETHOXAZOLE W [Concomitant]
     Indication: PRODUCT USED FOR UNKNOWN INDICATION
  8. DEFEROXAMINE MESYLATE [Concomitant]
     Indication: PRODUCT USED FOR UNKNOWN INDICATION
  9. ACYCLOVIR [Concomitant]
     Indication: PRODUCT USED FOR UNKNOWN INDICATION

REACTIONS (1)
  - INTERSTITIAL LUNG DISEASE [None]
